FAERS Safety Report 17835338 (Version 7)
Quarter: 2021Q3

REPORT INFORMATION
  Report Type: Report from Study
  Country: US (occurrence: US)
  Receive Date: 20200528
  Receipt Date: 20210705
  Transmission Date: 20211014
  Serious: Yes (Other)
  Sender: FDA-Public Use
  Company Number: NVSC2020US141434

PATIENT
  Age: 43 Year
  Sex: Female
  Weight: 61.3 kg

DRUGS (3)
  1. MAYZENT [Suspect]
     Active Substance: SIPONIMOD
     Indication: MULTIPLE SCLEROSIS
     Dosage: 2 MG, QD
     Route: 048
     Dates: start: 20200312
  2. MAYZENT [Suspect]
     Active Substance: SIPONIMOD
     Dosage: 2 MG, QD
     Route: 048
  3. MAYZENT [Suspect]
     Active Substance: SIPONIMOD
     Dosage: 2 MG, QD
     Route: 048
     Dates: start: 20200410, end: 20200710

REACTIONS (12)
  - Paraesthesia [Recovering/Resolving]
  - Muscle spasms [Unknown]
  - Memory impairment [Recovered/Resolved with Sequelae]
  - Multiple sclerosis relapse [Unknown]
  - Product dose omission in error [Not Recovered/Not Resolved]
  - Skin burning sensation [Unknown]
  - Hepatic enzyme increased [Recovered/Resolved]
  - Abdominal pain [Unknown]
  - Lethargy [Recovered/Resolved with Sequelae]
  - Stress [Recovering/Resolving]
  - Inappropriate schedule of product administration [Unknown]
  - Fatigue [Recovered/Resolved with Sequelae]

NARRATIVE: CASE EVENT DATE: 20201104
